FAERS Safety Report 12117566 (Version 2)
Quarter: 2016Q1

REPORT INFORMATION
  Report Type: Spontaneous
  Country: NG (occurrence: NG)
  Receive Date: 20160226
  Receipt Date: 20160302
  Transmission Date: 20160526
  Serious: Yes (Life-Threatening, Hospitalization)
  Sender: FDA-Public Use
  Company Number: NG-ROCHE-1716838

PATIENT
  Age: 62 Year
  Sex: Male

DRUGS (5)
  1. MANNITOL. [Concomitant]
     Active Substance: MANNITOL
  2. LUCENTIS [Suspect]
     Active Substance: RANIBIZUMAB
     Indication: RETINAL NEOVASCULARISATION
  3. ATROPINE. [Concomitant]
     Active Substance: ATROPINE
  4. LUCENTIS [Suspect]
     Active Substance: RANIBIZUMAB
     Indication: MACULAR OEDEMA
     Dosage: DOSE 3 MG
     Route: 050
     Dates: start: 20160118
  5. ACETAZOLAMIDE. [Concomitant]
     Active Substance: ACETAZOLAMIDE

REACTIONS (1)
  - Ischaemic stroke [Recovering/Resolving]
